FAERS Safety Report 17089978 (Version 1)
Quarter: 2019Q4

REPORT INFORMATION
  Report Type: Spontaneous
  Country: US (occurrence: US)
  Receive Date: 20191129
  Receipt Date: 20191129
  Transmission Date: 20200122
  Serious: No
  Sender: FDA-Public Use
  Company Number: US-009507513-1911USA011721

PATIENT
  Age: 47 Year
  Sex: Female
  Weight: 117.01 kg

DRUGS (1)
  1. NEXPLANON [Suspect]
     Active Substance: ETONOGESTREL
     Indication: CONTRACEPTION
     Dosage: 1 IMPLANT, UNSPECIFIED ARM
     Route: 059
     Dates: start: 20190926

REACTIONS (3)
  - Device breakage [Recovered/Resolved]
  - Tourniquet application [Unknown]
  - Medical device site discomfort [Recovered/Resolved]

NARRATIVE: CASE EVENT DATE: 20191119
